FAERS Safety Report 20691793 (Version 1)
Quarter: 2022Q2

REPORT INFORMATION
  Report Type: Spontaneous
  Country: US (occurrence: None)
  Receive Date: 20220407
  Receipt Date: 20220407
  Transmission Date: 20220720
  Serious: No
  Sender: FDA-Public Use
  Company Number: None

PATIENT
  Age: 46 Year
  Sex: Male
  Weight: 137.26 kg

DRUGS (22)
  1. TEMOZOLOMIDE [Suspect]
     Active Substance: TEMOZOLOMIDE
     Indication: Brain neoplasm malignant
     Dosage: OTHER FREQUENCY : EVERY NIGHT;?
     Route: 048
  2. ASPIRIN [Concomitant]
     Active Substance: ASPIRIN
  3. ATORVASTATIN [Concomitant]
     Active Substance: ATORVASTATIN
  4. CALCIUM\VITAMIN D [Concomitant]
     Active Substance: CALCIUM\VITAMIN D
  5. DEMAMETHASONE [Concomitant]
  6. ESCITALOPRAM [Concomitant]
     Active Substance: ESCITALOPRAM OXALATE
  7. FLINSTONES/EXTRA C [Concomitant]
  8. ESCITALOPRAM [Concomitant]
     Active Substance: ESCITALOPRAM OXALATE
  9. FLINSTONES/EXTRA C [Concomitant]
  10. LEVETIRACETAM [Concomitant]
     Active Substance: LEVETIRACETAM
  11. LEVOTHYROXINE [Concomitant]
     Active Substance: LEVOTHYROXINE
  12. LORAZEPAM [Concomitant]
     Active Substance: LORAZEPAM
  13. MAGNESIUM OXIDE [Concomitant]
     Active Substance: MAGNESIUM OXIDE
  14. MEDICAL MARIJUANNA [Concomitant]
  15. MELATONIN [Concomitant]
     Active Substance: MELATONIN
  16. METHYLPHENIDATE [Concomitant]
     Active Substance: METHYLPHENIDATE
  17. OMEPRAZOLE [Concomitant]
     Active Substance: OMEPRAZOLE
  18. ONDANSETRON [Concomitant]
     Active Substance: ONDANSETRON
  19. POTASSIUM [Concomitant]
     Active Substance: POTASSIUM
  20. VITAMIN B12 [Concomitant]
     Active Substance: CYANOCOBALAMIN
  21. VITAMIN D [Concomitant]
     Active Substance: VITAMIN D NOS
  22. VITAMIN E [Concomitant]
     Active Substance: .ALPHA.-TOCOPHEROL

REACTIONS (3)
  - Platelet count decreased [None]
  - Nasopharyngitis [None]
  - Therapy interrupted [None]
